FAERS Safety Report 9711612 (Version 2)
Quarter: 2013Q4

REPORT INFORMATION
  Report Type: Spontaneous
  Country: US (occurrence: US)
  Receive Date: 20131126
  Receipt Date: 20131126
  Transmission Date: 20140711
  Serious: No
  Sender: FDA-Public Use
  Company Number: US-BRISTOL-MYERS SQUIBB COMPANY-18782656

PATIENT
  Age: 72 Year
  Sex: Male

DRUGS (2)
  1. BYDUREON [Suspect]
     Dosage: LOT#72930?EXP:AUG2013
     Dates: start: 20130328
  2. METFORMIN HCL [Suspect]

REACTIONS (3)
  - Decreased appetite [Unknown]
  - Injection site haemorrhage [Unknown]
  - Weight decreased [Unknown]
